FAERS Safety Report 10398677 (Version 1)
Quarter: 2014Q1

REPORT INFORMATION
  Report Type: Spontaneous
  Country: US (occurrence: None)
  Receive Date: 20130815
  Receipt Date: 20130815
  Transmission Date: 20141002
  Serious: Yes (Other)
  Sender: FDA-Public Use
  Company Number: ADR-2012-01213

PATIENT
  Sex: Female

DRUGS (2)
  1. BACLOFEN INTRATHECAL [Suspect]
     Indication: PAIN
     Dosage: SEE B5
  2. BACLOFEN INTRATHECAL [Suspect]
     Indication: BACK PAIN
     Dosage: SEE B5

REACTIONS (5)
  - Arthralgia [None]
  - No therapeutic response [None]
  - Joint injury [None]
  - Sciatica [None]
  - Back pain [None]
